FAERS Safety Report 8103580-8 (Version None)
Quarter: 2012Q1

REPORT INFORMATION
  Report Type: 
  Country: None (occurrence: None)
  Receive Date: 20120201
  Receipt Date: 20120130
  Transmission Date: 20120608
  Serious: Yes (Hospitalization)
  Sender: FDA-Public Use
  Company Number: IT-ROCHE-1034920

PATIENT

DRUGS (1)
  1. AVASTIN [Suspect]
     Indication: RECTAL CANCER
     Dates: start: 20110523, end: 20111220

REACTIONS (2)
  - ATRIAL FIBRILLATION [None]
  - CARDIAC FAILURE [None]
